FAERS Safety Report 21795567 (Version 1)
Quarter: 2022Q4

REPORT INFORMATION
  Report Type: Spontaneous
  Country: NL (occurrence: NL)
  Receive Date: 20221229
  Receipt Date: 20221229
  Transmission Date: 20230113
  Serious: Yes (Life-Threatening)
  Sender: FDA-Public Use
  Company Number: None

PATIENT
  Sex: Female
  Weight: 80 kg

DRUGS (3)
  1. CODEINE [Suspect]
     Active Substance: CODEINE
     Indication: Pain
     Route: 065
     Dates: start: 20190101
  2. ACETAMINOPHEN [Suspect]
     Active Substance: ACETAMINOPHEN
     Indication: Pain
     Dosage: UNK
     Route: 065
     Dates: start: 20190101
  3. HALDOL [Suspect]
     Active Substance: HALOPERIDOL
     Indication: Psychiatric symptom
     Dosage: 3 MILLIGRAM
     Route: 065
     Dates: start: 20220915

REACTIONS (2)
  - Cystitis [Not Recovered/Not Resolved]
  - Pyelonephritis [Not Recovered/Not Resolved]
